FAERS Safety Report 20290277 (Version 1)
Quarter: 2022Q1

REPORT INFORMATION
  Report Type: Spontaneous
  Country: US (occurrence: None)
  Receive Date: 20220103
  Receipt Date: 20220103
  Transmission Date: 20220424
  Serious: Yes (Death)
  Sender: FDA-Public Use
  Company Number: None

PATIENT
  Age: 82 Year
  Sex: Male
  Weight: 102.15 kg

DRUGS (18)
  1. ABIRATERONE [Suspect]
     Active Substance: ABIRATERONE
     Indication: Prostate cancer
     Dosage: FREQUENCY : DAILY;?
     Route: 048
     Dates: start: 20200710, end: 20211230
  2. PREDNISONE [Concomitant]
     Active Substance: PREDNISONE
  3. LUPRON [Concomitant]
     Active Substance: LEUPROLIDE ACETATE
  4. AMLODIPINE [Concomitant]
     Active Substance: AMLODIPINE BESYLATE
  5. ASPIRIN [Concomitant]
     Active Substance: ASPIRIN
  6. atorvatstatin [Concomitant]
  7. MINERALS\VITAMINS [Concomitant]
     Active Substance: MINERALS\VITAMINS
  8. COLACE [Concomitant]
     Active Substance: DOCUSATE SODIUM
  9. FENOFIBRATE [Concomitant]
     Active Substance: FENOFIBRATE
  10. FISH OIL [Concomitant]
     Active Substance: FISH OIL
  11. IRON\VITAMIN B [Concomitant]
     Active Substance: IRON\VITAMIN B
  12. kisartab [Concomitant]
  13. METFORMIN [Concomitant]
     Active Substance: METFORMIN HYDROCHLORIDE
  14. OMEPRAZOLE [Concomitant]
     Active Substance: OMEPRAZOLE
  15. TRICOR [Concomitant]
     Active Substance: FENOFIBRATE
  16. ONDANSETRON [Concomitant]
     Active Substance: ONDANSETRON
  17. ELIQUIS [Concomitant]
     Active Substance: APIXABAN
  18. PLAVIX [Concomitant]
     Active Substance: CLOPIDOGREL BISULFATE

REACTIONS (1)
  - Death [None]

NARRATIVE: CASE EVENT DATE: 20211230
